FAERS Safety Report 9619300 (Version 1)
Quarter: 2013Q4

REPORT INFORMATION
  Report Type: Spontaneous
  Country: TR (occurrence: TR)
  Receive Date: 20131014
  Receipt Date: 20131014
  Transmission Date: 20140711
  Serious: Yes (Hospitalization)
  Sender: FDA-Public Use
  Company Number: TR-NOVOPROD-389573

PATIENT
  Sex: Male
  Weight: 3.2 kg

DRUGS (2)
  1. LEVEMIR FLEXPEN [Suspect]
     Indication: GESTATIONAL DIABETES
     Dosage: 4 U, QD
     Route: 064
     Dates: start: 20130524, end: 20130618
  2. LEVOTIRON [Concomitant]
     Indication: HYPOTHYROIDISM
     Dosage: 0.1 MG, QD
     Route: 064
     Dates: end: 20130718

REACTIONS (3)
  - Neonatal tachypnoea [Recovered/Resolved]
  - Premature baby [Unknown]
  - Foetal exposure during pregnancy [Recovered/Resolved]
